FAERS Safety Report 5548207-4 (Version None)
Quarter: 2007Q4

REPORT INFORMATION
  Report Type: 
  Country: None (occurrence: None)
  Receive Date: 20071211
  Receipt Date: 20070315
  Transmission Date: 20080405
  Serious: No
  Sender: FDA-Public Use
  Company Number: US-AMGEN-KDL207302

PATIENT
  Sex: Male

DRUGS (9)
  1. ENBREL [Suspect]
     Indication: RHEUMATOID ARTHRITIS
     Route: 058
     Dates: start: 20021001
  2. PREDNISONE [Suspect]
  3. ARAVA [Concomitant]
     Route: 048
  4. GABAPENTIN [Concomitant]
  5. ETODOLAC [Concomitant]
  6. OMEPRAZOLE [Concomitant]
  7. LISINOPRIL [Concomitant]
  8. TRAMADOL HCL [Concomitant]
  9. VENLAFAXINE HCL [Concomitant]

REACTIONS (3)
  - COUGH [None]
  - SECRETION DISCHARGE [None]
  - SINUS CONGESTION [None]
